FAERS Safety Report 8929249 (Version 1)
Quarter: 2012Q4

REPORT INFORMATION
  Report Type: Spontaneous
  Country: US (occurrence: None)
  Receive Date: 20121126
  Receipt Date: 20121126
  Transmission Date: 20130627
  Serious: Yes (Other)
  Sender: FDA-Public Use
  Company Number: None

PATIENT
  Age: 80 Year
  Sex: Female
  Weight: 53.52 kg

DRUGS (1)
  1. AVALOX - 400 MG MERCK [Suspect]
     Indication: BRONCHITIS
     Dates: start: 20121019, end: 20121020

REACTIONS (11)
  - Chest pain [None]
  - Palpitations [None]
  - Pain in extremity [None]
  - Hypoaesthesia [None]
  - Muscular weakness [None]
  - Nervousness [None]
  - Confusional state [None]
  - Tremor [None]
  - Tendon disorder [None]
  - Blood pressure increased [None]
  - Urine output decreased [None]
